FAERS Safety Report 13084247 (Version 1)
Quarter: 2017Q1

REPORT INFORMATION
  Report Type: Spontaneous
  Country: US (occurrence: US)
  Receive Date: 20170101
  Receipt Date: 20170101
  Transmission Date: 20170428
  Serious: Yes (Other)
  Sender: FDA-Public Use
  Company Number: None

PATIENT
  Age: 46 Year
  Sex: Female
  Weight: 65.25 kg

DRUGS (2)
  1. ARMORTHYROID [Concomitant]
  2. TRANSDERM SCOP [Suspect]
     Active Substance: SCOPOLAMINE
     Indication: MOTION SICKNESS
     Dosage: ?          QUANTITY:1 PATCH(ES);OTHER FREQUENCY:1 PER 72 HRS PRN;?
     Route: 062
     Dates: start: 20161229, end: 20161230

REACTIONS (10)
  - Amnesia [None]
  - Paranoia [None]
  - Confusional state [None]
  - Reading disorder [None]
  - Anxiety [None]
  - Agitation [None]
  - Malaise [None]
  - Hallucination [None]
  - Psychotic disorder [None]
  - Vision blurred [None]

NARRATIVE: CASE EVENT DATE: 20161230
